FAERS Safety Report 10990190 (Version 3)
Quarter: 2015Q2

REPORT INFORMATION
  Report Type: Report from Study
  Country: AT (occurrence: AT)
  Receive Date: 20150406
  Receipt Date: 20150526
  Transmission Date: 20150821
  Serious: Yes (Hospitalization)
  Sender: FDA-Public Use
  Company Number: AT-SA-2015SA041292

PATIENT
  Age: 64 Year
  Sex: Male
  Weight: 96 kg

DRUGS (29)
  1. JEVTANA [Suspect]
     Active Substance: CABAZITAXEL
     Indication: PROSTATE CANCER
     Dosage: ROUTE: IV INFUSION
     Dates: start: 20150316, end: 20150316
  2. LIPCOR [Concomitant]
     Active Substance: FENOFIBRATE
     Indication: BLOOD CHOLESTEROL
     Dates: start: 20141001
  3. MAGNESIUM [Concomitant]
     Active Substance: MAGNESIUM
     Indication: MINERAL SUPPLEMENTATION
     Dates: start: 20150302
  4. DEXAMETHASONE. [Concomitant]
     Active Substance: DEXAMETHASONE
     Indication: PROPHYLAXIS OF NAUSEA AND VOMITING
     Dosage: EVERY CYCLE OF D1
     Dates: start: 20150130
  5. ENALAPRIL [Concomitant]
     Active Substance: ENALAPRIL
     Indication: HYPERTENSION
  6. FENISTIL [Concomitant]
     Active Substance: DIMETHINDENE
     Indication: HYPERSENSITIVITY
     Dosage: 1 AMPOULE EVERY CYCLE DAY 1
     Dates: start: 20150130
  7. GLANDOMED [Concomitant]
     Indication: PROPHYLAXIS
     Dates: start: 20150206
  8. SPIRONO [Concomitant]
     Indication: URINARY TRACT DISORDER
     Dosage: 1-2/DAY
     Dates: start: 20150101
  9. KYTRIL [Concomitant]
     Active Substance: GRANISETRON HYDROCHLORIDE
     Indication: PROPHYLAXIS OF NAUSEA AND VOMITING
     Dosage: DAY 1 OF EVERY CYCLE
     Dates: start: 20150130
  10. ULSAL [Concomitant]
     Indication: PROPHYLAXIS
     Dosage: ON AMPOULE ON EVERY CYCLE DAY 1
     Dates: start: 20150130
  11. LOVENOX [Concomitant]
     Active Substance: ENOXAPARIN SODIUM
     Indication: THROMBOSIS PROPHYLAXIS
     Dates: start: 20150219, end: 20150330
  12. CALCIUM GLYCEROPHOSPHATE\CELLULOSE\POLYETHYLENE GLYCOL\SACCHARIN SODIUM\SODIUM HYDROXIDE\SODIUM LAURYL SULFATE\SODIUM MAGNESIUM SILICATE\SODIUM MONOFLUOROPHOSPHATE\SORBITOL\WATER [Concomitant]
     Active Substance: CALCIUM GLYCEROPHOSPHATE\POLYETHYLENE GLYCOLS\POWDERED CELLULOSE\SACCHARIN SODIUM DIHYDRATE\SODIUM HYDROXIDE\SODIUM LAURYL SULFATE\SODIUM MAGNESIUM SILICATE\SODIUM MONOFLUOROPHOSPHATE\SORBITOL\WATER
     Indication: CONSTIPATION
     Dosage: 1 SAC/DAY
     Dates: start: 20150219
  13. JEVTANA [Suspect]
     Active Substance: CABAZITAXEL
     Indication: PROSTATE CANCER
     Dosage: ROUTE: IV INFUSION
     Dates: start: 20150414, end: 20150414
  14. JEVTANA [Suspect]
     Active Substance: CABAZITAXEL
     Indication: PROSTATE CANCER
     Dosage: ROUTE: IV INFUSION
     Dates: start: 20150130, end: 20150130
  15. VOLTAREN [Concomitant]
     Active Substance: DICLOFENAC SODIUM
     Indication: ARTHRALGIA
     Dates: start: 20150101
  16. APREDNISLON [Concomitant]
     Active Substance: PREDNISOLONE
     Indication: PROPHYLAXIS OF NAUSEA AND VOMITING
     Dates: start: 20150219
  17. LOVENOX [Concomitant]
     Active Substance: ENOXAPARIN SODIUM
     Indication: THROMBOSIS PROPHYLAXIS
     Dates: start: 20150330
  18. GLUCOPHAGE [Concomitant]
     Active Substance: METFORMIN HYDROCHLORIDE
     Indication: TYPE 2 DIABETES MELLITUS
  19. VOLTAREN [Concomitant]
     Active Substance: DICLOFENAC SODIUM
     Indication: MYALGIA
     Dates: start: 20150101
  20. VITAMIN D/CALCIUM [Concomitant]
     Indication: MINERAL SUPPLEMENTATION
  21. XGEVA [Concomitant]
     Active Substance: DENOSUMAB
     Indication: PROPHYLAXIS
  22. VIMOVO [Concomitant]
     Active Substance: ESOMEPRAZOLE MAGNESIUM\NAPROXEN
     Indication: PAIN
     Dates: start: 20150101
  23. ZURCAL [Concomitant]
     Active Substance: PANTOPRAZOLE SODIUM
     Indication: PROPHYLAXIS
  24. LEGALON [Concomitant]
     Active Substance: MILK THISTLE
     Indication: LIVER DISORDER
  25. ENALAPRIL [Concomitant]
     Active Substance: ENALAPRIL
     Indication: HYPERTENSION
     Dosage: 20/12.5 MG
     Dates: start: 20150101
  26. NOVALGIN [Concomitant]
     Active Substance: METAMIZOLE SODIUM
     Indication: PAIN
     Dosage: MSX.3/DAY
     Dates: start: 20150101
  27. RENNIE /00219301/ [Concomitant]
     Indication: PROPHYLAXIS
     Dosage: MAX 6/DAY
     Dates: start: 20150101
  28. OLEOVIT-D3 [Concomitant]
     Indication: VITAMIN D
  29. JANUVIA [Concomitant]
     Active Substance: SITAGLIPTIN PHOSPHATE
     Indication: TYPE 2 DIABETES MELLITUS
     Dates: start: 20150101

REACTIONS (1)
  - Pulmonary embolism [Recovered/Resolved]

NARRATIVE: CASE EVENT DATE: 20150330
